FAERS Safety Report 9048230 (Version 1)
Quarter: 2013Q1

REPORT INFORMATION
  Report Type: Spontaneous
  Country: US (occurrence: US)
  Receive Date: 20130204
  Receipt Date: 20130204
  Transmission Date: 20140127
  Serious: No
  Sender: FDA-Public Use
  Company Number: US-AMGEN-USASP2013002623

PATIENT
  Sex: Male

DRUGS (2)
  1. ENBREL [Suspect]
     Indication: PSORIASIS
     Dosage: 100 MG, QWK
     Dates: start: 20090427, end: 201112
  2. METHOTREXATE [Concomitant]
     Dosage: UNK
     Route: 048
     Dates: start: 201110, end: 201110

REACTIONS (2)
  - Therapeutic response decreased [Recovered/Resolved]
  - Hepatic enzyme increased [Not Recovered/Not Resolved]
